FAERS Safety Report 5713211-X (Version None)
Quarter: 2008Q2

REPORT INFORMATION
  Report Type: 
  Country: None (occurrence: None)
  Receive Date: 20080422
  Receipt Date: 20080414
  Transmission Date: 20081010
  Serious: Yes (Other)
  Sender: FDA-Public Use
  Company Number: US-WYE-H03632908

PATIENT
  Sex: Female

DRUGS (1)
  1. MYLOTARG [Suspect]
     Dosage: NOT PROVIDED

REACTIONS (2)
  - CONGESTIVE CARDIOMYOPATHY [None]
  - OEDEMA [None]
